FAERS Safety Report 23040763 (Version 1)
Quarter: 2023Q4

REPORT INFORMATION
  Report Type: Spontaneous
  Country: PE (occurrence: PE)
  Receive Date: 20231006
  Receipt Date: 20231006
  Transmission Date: 20240110
  Serious: Yes (Life-Threatening)
  Sender: FDA-Public Use
  Company Number: PE-BAUSCHBL-2023BNL009428

PATIENT
  Sex: Female
  Weight: 1.725 kg

DRUGS (1)
  1. DEXAMETHASONE [Suspect]
     Active Substance: DEXAMETHASONE
     Indication: Maternal therapy to enhance foetal lung maturity
     Dosage: MATERNAL THERAPY
     Route: 065

REACTIONS (2)
  - Gastric perforation [Recovered/Resolved]
  - Foetal exposure during pregnancy [Unknown]
